FAERS Safety Report 16612824 (Version 1)
Quarter: 2019Q3

REPORT INFORMATION
  Report Type: Spontaneous
  Country: US (occurrence: US)
  Receive Date: 20190722
  Receipt Date: 20190722
  Transmission Date: 20191004
  Serious: Yes (Death, Hospitalization, Other)
  Sender: FDA-Public Use
  Company Number: PHHY2019US167466

PATIENT
  Age: 80 Year
  Sex: Male

DRUGS (4)
  1. SECUKINUMAB. [Suspect]
     Active Substance: SECUKINUMAB
     Indication: RASH
     Dosage: 300 MG, BIW
     Route: 058
  2. ACITRETIN. [Suspect]
     Active Substance: ACITRETIN
     Dosage: 25 MG, QD
     Route: 048
  3. ACITRETIN. [Suspect]
     Active Substance: ACITRETIN
     Indication: DERMATITIS PSORIASIFORM
     Dosage: 10 MG, QD
     Route: 048
  4. PREDNISONE. [Concomitant]
     Active Substance: PREDNISONE
     Indication: DERMATITIS PSORIASIFORM
     Dosage: 50 MG, UNK
     Route: 065

REACTIONS (7)
  - Rash [Recovering/Resolving]
  - Product use in unapproved indication [Unknown]
  - Thrombocytopenia [Unknown]
  - Dyspnoea [Fatal]
  - Chronic obstructive pulmonary disease [Fatal]
  - Chronic kidney disease [Fatal]
  - Fluid overload [Fatal]

NARRATIVE: CASE EVENT DATE: 201610
